FAERS Safety Report 6122844-0 (Version None)
Quarter: 2009Q1

REPORT INFORMATION
  Report Type: 
  Country: None (occurrence: None)
  Receive Date: 20090318
  Receipt Date: 20090312
  Transmission Date: 20090719
  Serious: Yes (Other)
  Sender: FDA-Public Use
  Company Number: A0772816A

PATIENT
  Age: 53 Year
  Sex: Female

DRUGS (6)
  1. TYKERB [Suspect]
     Indication: LYMPHOMA
     Dosage: 1TAB TWICE PER DAY
     Route: 048
     Dates: start: 20090207, end: 20090309
  2. DONNATAL EXTENTABS [Concomitant]
  3. MOMETASONE CREAM [Concomitant]
  4. RAPAMUNE [Concomitant]
  5. SODIUM PHENYLBUTYRATE [Concomitant]
  6. NEXAVAR [Concomitant]

REACTIONS (3)
  - DIARRHOEA [None]
  - THERAPEUTIC RESPONSE UNEXPECTED [None]
  - VAGINAL HAEMORRHAGE [None]
